FAERS Safety Report 10954236 (Version 1)
Quarter: 2015Q1

REPORT INFORMATION
  Report Type: Spontaneous
  Country: US (occurrence: US)
  Receive Date: 20150325
  Receipt Date: 20150325
  Transmission Date: 20150721
  Serious: Yes (Other)
  Sender: FDA-Public Use
  Company Number: US-PFIZER INC-2015104062

PATIENT
  Age: 63 Year
  Sex: Female

DRUGS (2)
  1. REVLIMID [Suspect]
     Active Substance: LENALIDOMIDE
     Dosage: UNK UNK, CYCLIC
     Dates: start: 20150105, end: 20150125
  2. SUTENT [Suspect]
     Active Substance: SUNITINIB MALATE
     Indication: PLASMA CELL MYELOMA
     Dosage: 12.5 MG, CYCLIC DAILY
     Route: 048
     Dates: start: 20150105

REACTIONS (4)
  - Dizziness [Unknown]
  - Dysgeusia [Unknown]
  - Product use issue [Unknown]
  - Diplopia [Unknown]

NARRATIVE: CASE EVENT DATE: 20150202
